FAERS Safety Report 5052152-0 (Version None)
Quarter: 2006Q3

REPORT INFORMATION
  Report Type: 
  Country: None (occurrence: None)
  Receive Date: 20060712
  Receipt Date: 20060712
  Transmission Date: 20061208
  Serious: Yes (Hospitalization)
  Sender: FDA-Public Use
  Company Number: None

PATIENT
  Age: 59 Year
  Sex: Male
  Weight: 84.8 kg

DRUGS (2)
  1. CEFEPIME [Suspect]
     Indication: CATHETER RELATED INFECTION
     Dosage: 2-6G, 208; 1012, INTRAVEN
     Route: 042
     Dates: start: 20060525, end: 20060608
  2. VANCOMYCIN [Concomitant]

REACTIONS (1)
  - RASH [None]
